FAERS Safety Report 7121078-0 (Version None)
Quarter: 2010Q4

REPORT INFORMATION
  Report Type: 
  Country: None (occurrence: None)
  Receive Date: 20101124
  Receipt Date: 20101118
  Transmission Date: 20110411
  Serious: Yes (Life-Threatening)
  Sender: FDA-Public Use
  Company Number: GB-JNJFOC-20101106136

PATIENT
  Age: 18 Year
  Sex: Female
  Weight: 77 kg

DRUGS (4)
  1. CILEST [Suspect]
     Indication: CONTRACEPTION
     Route: 048
  2. AMOXICILLIN [Concomitant]
     Indication: PNEUMONIA
     Route: 065
  3. IBUPROFEN [Concomitant]
     Route: 065
  4. PARACETAMOL [Concomitant]
     Route: 065

REACTIONS (2)
  - PULMONARY EMBOLISM [None]
  - PULMONARY INFARCTION [None]
